FAERS Safety Report 7180758-1 (Version None)
Quarter: 2010Q4

REPORT INFORMATION
  Report Type: 
  Country: None (occurrence: None)
  Receive Date: 20101221
  Receipt Date: 20101214
  Transmission Date: 20110411
  Serious: Yes (Other)
  Sender: FDA-Public Use
  Company Number: BR-AMGEN-BRASP2010010157

PATIENT

DRUGS (3)
  1. ENBREL [Suspect]
     Indication: ARTHRITIS
     Dosage: 50 MG, WEEKLY
     Route: 058
     Dates: start: 20100801, end: 20100101
  2. PARACETAMOL [Concomitant]
  3. PREDNISONE [Concomitant]

REACTIONS (12)
  - ASTHENOPIA [None]
  - BLOOD PRESSURE DECREASED [None]
  - COUGH [None]
  - DIZZINESS [None]
  - DYSPNOEA [None]
  - FLATULENCE [None]
  - HEART RATE INCREASED [None]
  - NASOPHARYNGITIS [None]
  - OROPHARYNGEAL PAIN [None]
  - SNEEZING [None]
  - SOMNOLENCE [None]
  - WEIGHT INCREASED [None]
